FAERS Safety Report 20908326 (Version 1)
Quarter: 2022Q2

REPORT INFORMATION
  Report Type: Spontaneous
  Country: US (occurrence: US)
  Receive Date: 20220603
  Receipt Date: 20220603
  Transmission Date: 20220720
  Serious: Yes (Other)
  Sender: FDA-Public Use
  Company Number: US-SUN PHARMACEUTICAL INDUSTRIES LTD-2022R1-338984

PATIENT
  Age: 64 Year
  Sex: Female

DRUGS (2)
  1. DOXORUBICIN [Suspect]
     Active Substance: DOXORUBICIN
     Indication: Phyllodes tumour
     Dosage: UNK
     Route: 065
  2. DACARBAZINE [Suspect]
     Active Substance: DACARBAZINE
     Indication: Phyllodes tumour
     Dosage: UNK
     Route: 065

REACTIONS (2)
  - Disease recurrence [Unknown]
  - Disease progression [Unknown]
